FAERS Safety Report 5099639-2 (Version None)
Quarter: 2006Q3

REPORT INFORMATION
  Report Type: 
  Country: None (occurrence: None)
  Receive Date: 20060906
  Receipt Date: 20060821
  Transmission Date: 20061208
  Serious: Yes (Hospitalization)
  Sender: FDA-Public Use
  Company Number: 2006100659

PATIENT
  Age: 64 Year
  Sex: Female

DRUGS (6)
  1. LINEZOLID [Suspect]
     Indication: STAPHYLOCOCCAL INFECTION
     Dosage: ORAL
     Route: 048
     Dates: start: 20060504, end: 20060601
  2. ALVEDON (PARACETAMOL) [Concomitant]
  3. PREDNISOLONE [Concomitant]
  4. DEXTROPROPOXYPHENE (DEXTROPROPOXYPHENE) [Concomitant]
  5. FEMANOR (ESTROGEN NOS, NORETHISTERONE) [Concomitant]
  6. RENITEC COMP. (ENALAPRIL MALEATE, HYDROCHLOROTHIAZIDE) [Concomitant]

REACTIONS (4)
  - ABDOMINAL PAIN UPPER [None]
  - FUNGAL INFECTION [None]
  - NAUSEA [None]
  - VOMITING [None]
